FAERS Safety Report 22065380 (Version 2)
Quarter: 2023Q1

REPORT INFORMATION
  Report Type: Spontaneous
  Country: JP (occurrence: JP)
  Receive Date: 20230306
  Receipt Date: 20230330
  Transmission Date: 20230418
  Serious: Yes (Other)
  Sender: FDA-Public Use
  Company Number: JP-TAIHO-2023-001430

PATIENT
  Age: 52 Year
  Sex: Male

DRUGS (2)
  1. ABRAXANE [Suspect]
     Active Substance: PACLITAXEL
     Indication: Gastric cancer stage IV
     Dosage: NI
     Route: 042
  2. CYRAMZA [Concomitant]
     Active Substance: RAMUCIRUMAB
     Indication: Gastric cancer stage IV
     Dosage: NI

REACTIONS (1)
  - Oesophageal stenosis [Unknown]
